FAERS Safety Report 9942378 (Version 1)
Quarter: 2014Q1

REPORT INFORMATION
  Report Type: Spontaneous
  Country: US (occurrence: US)
  Receive Date: 20140303
  Receipt Date: 20140303
  Transmission Date: 20141002
  Serious: Yes (Hospitalization, Other)
  Sender: FDA-Public Use
  Company Number: US-PFIZER INC-2014059160

PATIENT
  Sex: Female

DRUGS (2)
  1. MOTRIN IB [Suspect]
     Indication: BREAKTHROUGH PAIN
     Dosage: UNK
  2. OXYCONTIN [Concomitant]
     Indication: BREAKTHROUGH PAIN
     Dosage: UNK

REACTIONS (1)
  - Ulcer haemorrhage [Unknown]
